FAERS Safety Report 9245772 (Version 1)
Quarter: 2013Q2

REPORT INFORMATION
  Report Type: Spontaneous
  Country: JP (occurrence: JP)
  Receive Date: 20130422
  Receipt Date: 20130422
  Transmission Date: 20140414
  Serious: Yes (Hospitalization, Other)
  Sender: FDA-Public Use
  Company Number: JP-PFIZER INC-2013104464

PATIENT
  Age: 19 Year
  Sex: Female

DRUGS (6)
  1. JZOLOFT [Suspect]
     Dosage: 50 MG/DAY
     Route: 048
  2. JZOLOFT [Suspect]
     Dosage: 25X50MG, SINGLE
     Route: 048
  3. WYPAX [Suspect]
     Dosage: 0.5 MG, 1X/DAY
     Route: 048
  4. WYPAX [Suspect]
     Dosage: 0.5MG X25, SINGLE
     Route: 048
  5. ZYPREXA [Suspect]
     Dosage: 5 MG, 1X/DAY
     Route: 048
  6. ZYPREXA [Suspect]
     Dosage: 5MG X25, SINGLE
     Route: 048

REACTIONS (5)
  - Suicide attempt [Recovered/Resolved]
  - Overdose [Recovered/Resolved]
  - Altered state of consciousness [Recovered/Resolved]
  - Dizziness [Recovered/Resolved]
  - Urinary incontinence [Recovered/Resolved]
